FAERS Safety Report 6011276-1 (Version None)
Quarter: 2008Q4

REPORT INFORMATION
  Report Type: 
  Country: None (occurrence: None)
  Receive Date: 20081218
  Receipt Date: 20081210
  Transmission Date: 20090506
  Serious: Yes (Hospitalization)
  Sender: FDA-Public Use
  Company Number: PHHY2008AT24901

PATIENT
  Sex: Female
  Weight: 80 kg

DRUGS (3)
  1. ZOLEDRONIC ACID [Suspect]
     Indication: OSTEOPOROSIS
     Dosage: 5 MG
     Dates: start: 20080925
  2. CAL-D-VITA [Concomitant]
     Dosage: 1 DF, QD
     Route: 048
  3. THYREX [Concomitant]
     Dosage: 1/2 DAILY
     Route: 048

REACTIONS (3)
  - ARTHRITIS [None]
  - JOINT SWELLING [None]
  - MUSCULOSKELETAL STIFFNESS [None]
